FAERS Safety Report 5401109-6 (Version None)
Quarter: 2007Q3

REPORT INFORMATION
  Report Type: 
  Country: None (occurrence: None)
  Receive Date: 20070731
  Receipt Date: 20070725
  Transmission Date: 20080115
  Serious: Yes (Death, Hospitalization, Congenital Anomaly, Other)
  Sender: FDA-Public Use
  Company Number: PHMT2006CA02055

PATIENT
  Age: 29 Year
  Sex: Female

DRUGS (5)
  1. CLOZARIL [Suspect]
     Indication: SCHIZOAFFECTIVE DISORDER
     Dosage: 425 MG DAILY
     Route: 048
     Dates: start: 20040804, end: 20061020
  2. CLOZARIL [Suspect]
     Dosage: UNK, UNK
     Route: 048
     Dates: start: 20020101
  3. PAXIL [Concomitant]
     Dosage: 20 MG, QAM
     Dates: start: 20060308
  4. TERAZOSIN HCL [Concomitant]
     Dosage: 4 MG, QHS
     Dates: start: 20050908
  5. COLACE [Concomitant]
     Dosage: 100 MG, QHS

REACTIONS (9)
  - BICUSPID AORTIC VALVE [None]
  - CARDIAC DISORDER [None]
  - DUODENAL ULCER [None]
  - GASTRITIS [None]
  - GASTROINTESTINAL HAEMORRHAGE [None]
  - PULMONARY HYPERTENSION [None]
  - SUDDEN DEATH [None]
  - THROMBOCYTOPENIA [None]
  - THROMBOTIC THROMBOCYTOPENIC PURPURA [None]
